FAERS Safety Report 8137326-4 (Version None)
Quarter: 2012Q1

REPORT INFORMATION
  Report Type: 
  Country: None (occurrence: None)
  Receive Date: 20120103
  Receipt Date: 20110913
  Transmission Date: 20120608
  Serious: No
  Sender: FDA-Public Use
  Company Number: AE-2011-001529

PATIENT
  Age: 40 Year
  Sex: Male
  Weight: 92.9874 kg

DRUGS (6)
  1. RIBAVIRIN [Concomitant]
  2. INCIVEK [Suspect]
     Dosage: 2250 MG (750 MG, 3 IN 1 D), ORAL
     Route: 048
  3. LOSARTAN 15/125 (LOSARTAN) [Concomitant]
  4. URSO FORTE [Concomitant]
  5. PEGASYS [Concomitant]
  6. VENLAFAXINE [Concomitant]

REACTIONS (2)
  - NAUSEA [None]
  - VOMITING [None]
